FAERS Safety Report 21963093 (Version 1)
Quarter: 2023Q1

REPORT INFORMATION
  Report Type: Report from Study
  Country: US (occurrence: US)
  Receive Date: 20230207
  Receipt Date: 20230207
  Transmission Date: 20230417
  Serious: No
  Sender: FDA-Public Use
  Company Number: US-AMRYT PHARMACEUTICALS DAC-AEGR006125

PATIENT
  Age: 6 Year
  Sex: Female

DRUGS (6)
  1. METRELEPTIN [Suspect]
     Active Substance: METRELEPTIN
     Indication: Congenital generalised lipodystrophy
     Dosage: 0.05 MG/KG, QD
     Dates: start: 20200518, end: 20210121
  2. METRELEPTIN [Suspect]
     Active Substance: METRELEPTIN
     Dosage: 0.06 MG/KG, QD
     Dates: start: 20210122, end: 20220216
  3. METRELEPTIN [Suspect]
     Active Substance: METRELEPTIN
     Dosage: 0.09 MG/KG, QD
     Dates: start: 20220217
  4. TRI-VI-SOL WITH IRON [Concomitant]
     Indication: Supplementation therapy
     Dosage: 1 MILLILITER, QID
     Route: 048
     Dates: start: 20160701
  5. IBUPROFEN [Concomitant]
     Active Substance: IBUPROFEN
     Indication: Eye contusion
     Dosage: 250 MILLIGRAM, QD
     Route: 048
     Dates: start: 20220222, end: 20220222
  6. ZOFRAN [Concomitant]
     Active Substance: ONDANSETRON HYDROCHLORIDE
     Indication: Eye contusion
     Dosage: 4 MILLIGRAM, QD
     Route: 048
     Dates: start: 20220222, end: 20220222

REACTIONS (2)
  - Pharyngitis [Recovered/Resolved]
  - Upper respiratory tract infection [Recovered/Resolved]

NARRATIVE: CASE EVENT DATE: 20220428
